FAERS Safety Report 7313399-3 (Version None)
Quarter: 2011Q1

REPORT INFORMATION
  Report Type: 
  Country: None (occurrence: None)
  Receive Date: 20110217
  Receipt Date: 20110217
  Transmission Date: 20110831
  Serious: Yes (Disabling)
  Sender: FDA-Public Use
  Company Number: None

PATIENT
  Sex: Male
  Weight: 114.5 kg

DRUGS (1)
  1. OMNISCAN [Suspect]
     Indication: NERVOUS SYSTEM DISORDER
     Dosage: 20 ML ONCE 040 INTRAVENOUS BOLUS
     Route: 040
     Dates: start: 20040805

REACTIONS (3)
  - HEPATOMEGALY [None]
  - NEPHROCALCINOSIS [None]
  - NEPHROGENIC SYSTEMIC FIBROSIS [None]
